FAERS Safety Report 18117295 (Version 1)
Quarter: 2020Q3

REPORT INFORMATION
  Report Type: Other
  Country: AL (occurrence: AL)
  Receive Date: 20200806
  Receipt Date: 20200806
  Transmission Date: 20201103
  Serious: Yes (Life-Threatening, Hospitalization, Other)
  Sender: FDA-Public Use
  Company Number: AL-APPCO PHARMA LLC-2088227

PATIENT
  Age: 66 Year
  Sex: Male

DRUGS (1)
  1. LAMIVUDINE. [Suspect]
     Active Substance: LAMIVUDINE
     Indication: CHRONIC HEPATITIS
     Route: 065

REACTIONS (2)
  - Suicide attempt [Unknown]
  - Intentional self-injury [Recovered/Resolved]
